FAERS Safety Report 7556471-5 (Version None)
Quarter: 2011Q2

REPORT INFORMATION
  Report Type: 
  Country: None (occurrence: None)
  Receive Date: 20110615
  Receipt Date: 20110615
  Transmission Date: 20111010
  Serious: Yes (Hospitalization)
  Sender: FDA-Public Use
  Company Number: None

PATIENT
  Sex: Female
  Weight: 76.8 kg

DRUGS (2)
  1. ROSUVASTATIN [Suspect]
     Indication: CARDIAC DISORDER
     Dosage: 20MG DAILY PO
     Route: 048
     Dates: start: 20101001, end: 20101124
  2. CLOPIDOGREL [Suspect]
     Dosage: 75MG DAILY PO
     Route: 048

REACTIONS (5)
  - THROMBOTIC THROMBOCYTOPENIC PURPURA [None]
  - ABDOMINAL WALL HAEMORRHAGE [None]
  - PANCYTOPENIA [None]
  - RENAL FAILURE [None]
  - HEPATITIS [None]
